FAERS Safety Report 8126888-9 (Version None)
Quarter: 2012Q1

REPORT INFORMATION
  Report Type: 
  Country: None (occurrence: None)
  Receive Date: 20120210
  Receipt Date: 20120207
  Transmission Date: 20120608
  Serious: No
  Sender: FDA-Public Use
  Company Number: US-PFIZER INC-2012033927

PATIENT
  Sex: Female
  Weight: 70.295 kg

DRUGS (4)
  1. CALCIUM CARBONATE [Concomitant]
     Dosage: UNK
  2. DETROL LA [Suspect]
     Indication: HYPERTONIC BLADDER
     Dosage: 4 MG, 1X/DAY
     Route: 048
  3. BENICAR [Concomitant]
     Indication: HYPERTENSION
     Dosage: UNK
  4. TOVIAZ [Suspect]
     Indication: HYPERTONIC BLADDER
     Dosage: 8 MG, 1X/DAY
     Route: 048

REACTIONS (8)
  - NAUSEA [None]
  - VOMITING [None]
  - ABDOMINAL DISCOMFORT [None]
  - CONSTIPATION [None]
  - DIARRHOEA [None]
  - ABDOMINAL PAIN UPPER [None]
  - MALAISE [None]
  - DYSPEPSIA [None]
